FAERS Safety Report 5171310-8 (Version None)
Quarter: 2006Q4

REPORT INFORMATION
  Report Type: 
  Country: None (occurrence: None)
  Receive Date: 20061208
  Receipt Date: 20061208
  Transmission Date: 20070319
  Serious: Yes (Death)
  Sender: FDA-Public Use
  Company Number: None

PATIENT
  Age: 81 Year
  Sex: Female
  Weight: 56.6996 kg

DRUGS (3)
  1. PROZAC [Suspect]
     Indication: DEPRESSION
     Dosage: ORAL
     Route: 048
     Dates: start: 20040812, end: 20040925
  2. TYLENOL [Concomitant]
  3. CALAMINE LOTION [Concomitant]

REACTIONS (7)
  - CHRONIC OBSTRUCTIVE PULMONARY DISEASE [None]
  - DYSPNOEA [None]
  - HYPERSENSITIVITY [None]
  - PRURITUS [None]
  - RASH [None]
  - SKIN DISORDER [None]
  - URTICARIA [None]
